FAERS Safety Report 13010992 (Version 2)
Quarter: 2016Q4

REPORT INFORMATION
  Report Type: Report from Study
  Country: AR (occurrence: AR)
  Receive Date: 20161208
  Receipt Date: 20161221
  Transmission Date: 20170207
  Serious: Yes (Other)
  Sender: FDA-Public Use
  Company Number: PHHY2016AR167459

PATIENT
  Sex: Male

DRUGS (3)
  1. DIMETHYL FUMARATE [Concomitant]
     Active Substance: DIMETHYL FUMARATE
     Indication: MULTIPLE SCLEROSIS
     Route: 065
  2. ONBREZ BREEZHALER [Suspect]
     Active Substance: INDACATEROL
     Indication: CHRONIC OBSTRUCTIVE PULMONARY DISEASE
     Dosage: 1 DF, QD
     Route: 065
     Dates: start: 201610
  3. ONBREZ BREEZHALER [Suspect]
     Active Substance: INDACATEROL
     Dosage: 1 DF, QD
     Route: 065

REACTIONS (8)
  - Malaise [Unknown]
  - Productive cough [Not Recovered/Not Resolved]
  - Contraindicated product administered [Unknown]
  - Bronchitis [Unknown]
  - Abdominal pain [Recovering/Resolving]
  - Choking [Recovering/Resolving]
  - Chest discomfort [Recovering/Resolving]
  - Asthma [Unknown]

NARRATIVE: CASE EVENT DATE: 2016
